FAERS Safety Report 9756389 (Version 1)
Quarter: 2013Q4

REPORT INFORMATION
  Report Type: Spontaneous
  Country: US (occurrence: US)
  Receive Date: 20131213
  Receipt Date: 20131213
  Transmission Date: 20140711
  Serious: No
  Sender: FDA-Public Use
  Company Number: US-GLAXOSMITHKLINE-A1039749A

PATIENT
  Sex: Male

DRUGS (1)
  1. NICODERM PATCH [Suspect]
     Indication: PRODUCT USED FOR UNKNOWN INDICATION
     Route: 062

REACTIONS (4)
  - Insomnia [Recovering/Resolving]
  - Abnormal dreams [Recovering/Resolving]
  - Application site pain [Unknown]
  - Application site erythema [Unknown]
